FAERS Safety Report 6445324-1 (Version None)
Quarter: 2009Q4

REPORT INFORMATION
  Report Type: 
  Country: None (occurrence: None)
  Receive Date: 20091118
  Receipt Date: 20091109
  Transmission Date: 20100525
  Serious: Yes (Hospitalization)
  Sender: FDA-Public Use
  Company Number: B0595852A

PATIENT
  Sex: Female
  Weight: 76 kg

DRUGS (1)
  1. OFATUMUMAB [Suspect]
     Route: 042
     Dates: start: 20090915

REACTIONS (3)
  - DIARRHOEA [None]
  - FEBRILE NEUTROPENIA [None]
  - PYREXIA [None]
